FAERS Safety Report 6746035-5 (Version None)
Quarter: 2010Q2

REPORT INFORMATION
  Report Type: 
  Country: None (occurrence: None)
  Receive Date: 20100528
  Receipt Date: 20100514
  Transmission Date: 20101027
  Serious: Yes (Hospitalization)
  Sender: FDA-Public Use
  Company Number: US-ELI_LILLY_AND_COMPANY-US201005005375

PATIENT
  Sex: Female

DRUGS (10)
  1. FORTEO [Suspect]
     Indication: OSTEOPOROSIS
     Dosage: 20 UG, DAILY (1/D)
     Dates: start: 20090501, end: 20090101
  2. FORTEO [Suspect]
     Dosage: 20 UG, DAILY (1/D)
     Dates: start: 20090101, end: 20100512
  3. FENOFIBRATE [Concomitant]
     Dosage: 67 MG, UNKNOWN
  4. AMLODIPINE [Concomitant]
     Dosage: 5 MG, UNKNOWN
  5. ASPIRIN [Concomitant]
     Dosage: 81 MG, DAILY (1/D)
  6. PAXIL [Concomitant]
     Dosage: 20 MG, UNKNOWN
  7. VITAMIN D3 [Concomitant]
     Dosage: 2000 IU, UNKNOWN
  8. CITRACAL + D [Concomitant]
  9. VITAMIN B-12 [Concomitant]
     Dosage: 50 UG, UNKNOWN
  10. XANAX [Concomitant]

REACTIONS (6)
  - ARTHRALGIA [None]
  - ASTHENIA [None]
  - FATIGUE [None]
  - HIP FRACTURE [None]
  - JOINT SWELLING [None]
  - PAIN IN EXTREMITY [None]
